FAERS Safety Report 4934940-1 (Version None)
Quarter: 2006Q1

REPORT INFORMATION
  Report Type: 
  Country: None (occurrence: None)
  Receive Date: 20060306
  Receipt Date: 20060306
  Transmission Date: 20060701
  Serious: Yes (Hospitalization)
  Sender: FDA-Public Use
  Company Number: None

PATIENT
  Age: 73 Year
  Sex: Male
  Weight: 104.3273 kg

DRUGS (1)
  1. UNASYN [Suspect]
     Indication: CELLULITIS
     Dosage: 3GMS   Q8H   IV
     Route: 042
     Dates: start: 20050608, end: 20050610

REACTIONS (2)
  - DRUG ERUPTION [None]
  - PYREXIA [None]
